FAERS Safety Report 8802742 (Version 2)
Quarter: 2012Q4

REPORT INFORMATION
  Report Type: 
  Country: US (occurrence: US)
  Receive Date: 20120921
  Receipt Date: 20121015
  Transmission Date: 20130627
  Serious: Yes (Life-Threatening)
  Sender: FDA-Public Use
  Company Number: US-ROCHE-1102383

PATIENT
  Age: 56 Year
  Sex: Male

DRUGS (4)
  1. AVASTIN [Suspect]
     Indication: COLON CANCER METASTATIC
     Route: 042
     Dates: start: 2004, end: 2008
  2. AVASTIN [Suspect]
     Indication: METASTASES TO LIVER
  3. CETUXIMAB [Suspect]
     Indication: COLON CANCER METASTATIC
     Route: 065
  4. IRINOTECAN [Suspect]
     Indication: COLON CANCER METASTATIC
     Route: 065

REACTIONS (1)
  - Anaphylactic reaction [Recovered/Resolved]
